FAERS Safety Report 8583848-1 (Version None)
Quarter: 2012Q3

REPORT INFORMATION
  Report Type: 
  Country: None (occurrence: None)
  Receive Date: 20120810
  Receipt Date: 20120731
  Transmission Date: 20120928
  Serious: Yes (Other)
  Sender: FDA-Public Use
  Company Number: JP-MERCK-1208JPN001981

PATIENT

DRUGS (6)
  1. CELEBREX [Suspect]
     Dosage: 200 MG, UNK
     Route: 048
     Dates: start: 20120719, end: 20120722
  2. FAMOTIDINE [Suspect]
     Dosage: 40 MG, UNK
     Route: 048
     Dates: start: 20120719, end: 20120701
  3. NEUROTROPIN [Concomitant]
     Dosage: UNK
     Dates: start: 20120719, end: 20120701
  4. NOVORAPID [Concomitant]
     Dosage: UNK
  5. NORVASC [Concomitant]
     Dosage: UNK
  6. LIPITOR [Concomitant]
     Dosage: UNK MG, UNK

REACTIONS (2)
  - INTENTIONAL DRUG MISUSE [None]
  - DRUG ERUPTION [None]
